FAERS Safety Report 16847763 (Version 2)
Quarter: 2019Q4

REPORT INFORMATION
  Report Type: Other
  Country: US (occurrence: US)
  Receive Date: 20190924
  Receipt Date: 20191222
  Transmission Date: 20200122
  Serious: No
  Sender: FDA-Public Use
  Company Number: US-ACORDA-ACO_160004_2019

PATIENT
  Age: 62 Year
  Sex: Female

DRUGS (1)
  1. INBRIJA [Suspect]
     Active Substance: LEVODOPA
     Indication: PARKINSON^S DISEASE
     Dosage: CONTENTS OF TWO CAPSULES (84 MILLIGRAM) PRN UP TO FIVE TIMES PER DAY
     Dates: end: 20190706

REACTIONS (4)
  - Asthma [Unknown]
  - Drug intolerance [Recovered/Resolved]
  - Fall [Unknown]
  - Loss of consciousness [Unknown]

NARRATIVE: CASE EVENT DATE: 20190706
